FAERS Safety Report 24780253 (Version 1)
Quarter: 2024Q4

REPORT INFORMATION
  Report Type: Spontaneous
  Country: CN (occurrence: CN)
  Receive Date: 20241227
  Receipt Date: 20241227
  Transmission Date: 20250115
  Serious: Yes (Hospitalization)
  Sender: BEIGENE
  Company Number: CN-BEIGENE-BGN-2024-020778

PATIENT

DRUGS (2)
  1. TISLELIZUMAB [Suspect]
     Active Substance: TISLELIZUMAB
     Indication: Hepatic cancer
     Dosage: 200 MILLIGRAM
     Route: 041
     Dates: start: 20241127
  2. LENVATINIB [Concomitant]
     Active Substance: LENVATINIB
     Indication: Hepatic cancer
     Dosage: 12 MILLIGRAM, QD
     Route: 048
     Dates: start: 20241106

REACTIONS (2)
  - Rash pruritic [Recovering/Resolving]
  - Hepatic function abnormal [Recovering/Resolving]

NARRATIVE: CASE EVENT DATE: 20241129
